FAERS Safety Report 16598338 (Version 1)
Quarter: 2019Q3

REPORT INFORMATION
  Report Type: Not Available
  Country: US (occurrence: US)
  Receive Date: 20190719
  Receipt Date: 20190719
  Transmission Date: 20191004
  Serious: No
  Sender: FDA-Public Use
  Company Number: US-NEUROCRINE BIOSCIENCES INC.-2019NBI01900

PATIENT
  Sex: Female

DRUGS (2)
  1. INGREZZA [Suspect]
     Active Substance: VALBENAZINE
     Indication: TARDIVE DYSKINESIA
     Route: 048
     Dates: start: 20190620, end: 20190626
  2. INGREZZA [Suspect]
     Active Substance: VALBENAZINE
     Route: 048
     Dates: start: 20190627, end: 2019

REACTIONS (5)
  - Abdominal pain [Unknown]
  - Pollakiuria [Unknown]
  - Drooling [Unknown]
  - Vomiting [Unknown]
  - Somnolence [Unknown]

NARRATIVE: CASE EVENT DATE: 2019
